FAERS Safety Report 5732858-8 (Version None)
Quarter: 2008Q2

REPORT INFORMATION
  Report Type: 
  Country: None (occurrence: None)
  Receive Date: 20080507
  Receipt Date: 20080507
  Transmission Date: 20081010
  Serious: No
  Sender: FDA-Public Use
  Company Number: None

PATIENT
  Age: 64 Year
  Sex: Female
  Weight: 93.8946 kg

DRUGS (1)
  1. DIGITEK 0.25 BERTEK - ACTAVIS TOTOWA [Suspect]
     Indication: ATRIAL FIBRILLATION
     Dosage: 1 DAILY PO
     Route: 048
     Dates: start: 20060810, end: 20080429

REACTIONS (8)
  - FATIGUE [None]
  - FLATULENCE [None]
  - HEART RATE ABNORMAL [None]
  - ILL-DEFINED DISORDER [None]
  - MUSCLE TIGHTNESS [None]
  - NAUSEA [None]
  - PAIN [None]
  - POLLAKIURIA [None]
